FAERS Safety Report 4274045-9 (Version None)
Quarter: 2004Q1

REPORT INFORMATION
  Report Type: 
  Country: None (occurrence: None)
  Receive Date: 20040115
  Receipt Date: 20040105
  Transmission Date: 20041129
  Serious: Yes (Death)
  Sender: FDA-Public Use
  Company Number: 04P-163-0246906-00

PATIENT

DRUGS (9)
  1. BIAXIN [Suspect]
     Indication: MULTIPLE MYELOMA
     Dosage: 500 MG, 2 IN 1 D
  2. BIAXIN [Suspect]
     Indication: WALDENSTROM'S MACROGLOBULINAEMIA
     Dosage: 500 MG, 2 IN 1 D
  3. THALOMID [Suspect]
     Indication: MULTIPLE MYELOMA
     Dosage: 50 MG, 1 IN 1 D
  4. THALOMID [Suspect]
     Indication: WALDENSTROM'S MACROGLOBULINAEMIA
     Dosage: 50 MG, 1 IN 1 D
  5. DEXAMETHASONE [Concomitant]
  6. OMEPRAZOLE [Concomitant]
  7. BETA-BLOCKER [Concomitant]
  8. CALCIUM-CHANNEL BLOCKER [Concomitant]
  9. AMIODARONE [Concomitant]

REACTIONS (1)
  - SUDDEN DEATH [None]
